FAERS Safety Report 8955856 (Version 2)
Quarter: 2013Q2

REPORT INFORMATION
  Report Type: Spontaneous
  Country: US (occurrence: US)
  Receive Date: 20121210
  Receipt Date: 20130513
  Transmission Date: 20140414
  Serious: Yes (Hospitalization, Other)
  Sender: FDA-Public Use
  Company Number: US-BAYER-2012-128604

PATIENT
  Age: 20 Year
  Sex: Female
  Weight: 59.3 kg

DRUGS (3)
  1. YASMIN [Suspect]
     Dosage: UNK
     Dates: start: 2002, end: 2003
  2. OCELLA [Suspect]
     Dosage: UNK
     Dates: start: 2002, end: 2003
  3. YAZ [Suspect]
     Dosage: UNK
     Dates: start: 2002, end: 2003

REACTIONS (9)
  - Deep vein thrombosis [None]
  - Thrombosis [None]
  - Pain [None]
  - Injury [None]
  - General physical health deterioration [None]
  - Abdominal pain [None]
  - Emotional distress [None]
  - Anxiety [None]
  - Pain [None]
